FAERS Safety Report 7498616-1 (Version None)
Quarter: 2011Q2

REPORT INFORMATION
  Report Type: 
  Country: None (occurrence: None)
  Receive Date: 20110524
  Receipt Date: 20101019
  Transmission Date: 20111010
  Serious: Yes (Hospitalization)
  Sender: FDA-Public Use
  Company Number: US-BAYER-201029952NA

PATIENT
  Age: 35 Year
  Sex: Female
  Weight: 83 kg

DRUGS (10)
  1. FLUOXETINE [Concomitant]
     Dosage: UNK
     Dates: start: 20060101
  2. MOTRIN [Concomitant]
  3. ASCORBIC ACID [Concomitant]
  4. WARFARIN SODIUM [Concomitant]
  5. HERBAL PREPARATION [Concomitant]
  6. OXYCONTIN [Concomitant]
  7. METFORMIN HCL [Concomitant]
     Dosage: UNK
     Dates: start: 20070101
  8. OXYCODONE HCL [Concomitant]
  9. PROZAC [Concomitant]
  10. YAZ [Suspect]
     Indication: MENSTRUAL CYCLE MANAGEMENT
     Route: 048
     Dates: start: 20090501, end: 20090715

REACTIONS (8)
  - PULMONARY EMBOLISM [None]
  - PAIN IN EXTREMITY [None]
  - DYSPNOEA [None]
  - DEEP VEIN THROMBOSIS [None]
  - OEDEMA PERIPHERAL [None]
  - MENTAL DISORDER [None]
  - PELVIC VENOUS THROMBOSIS [None]
  - ARTERIAL THROMBOSIS LIMB [None]
